FAERS Safety Report 5732593-6 (Version None)
Quarter: 2008Q2

REPORT INFORMATION
  Report Type: 
  Country: None (occurrence: None)
  Receive Date: 20080507
  Receipt Date: 20080421
  Transmission Date: 20081010
  Serious: Yes (Hospitalization)
  Sender: FDA-Public Use
  Company Number: 002#2#2007-00335

PATIENT
  Age: 57 Year
  Sex: Male
  Weight: 56.6996 kg

DRUGS (8)
  1. NEUPRO [Suspect]
     Indication: PARKINSON'S DISEASE
     Dosage: SEE IMAGE
     Route: 062
     Dates: start: 20070101, end: 20070101
  2. NEUPRO [Suspect]
     Indication: PARKINSON'S DISEASE
     Dosage: SEE IMAGE
     Route: 062
     Dates: start: 20071018, end: 20071001
  3. NEUPRO [Suspect]
     Indication: PARKINSON'S DISEASE
     Dosage: SEE IMAGE
     Route: 062
     Dates: start: 20071029, end: 20071030
  4. SINEMET CT [Concomitant]
  5. COMTAN [Concomitant]
  6. ARTANE [Concomitant]
  7. AMANTADINE HCL [Concomitant]
  8. SEROQUEL [Concomitant]

REACTIONS (4)
  - DELUSION [None]
  - HALLUCINATION [None]
  - MUSCULOSKELETAL STIFFNESS [None]
  - TREMOR [None]
